FAERS Safety Report 23719096 (Version 2)
Quarter: 2024Q2

REPORT INFORMATION
  Report Type: Spontaneous
  Country: US (occurrence: US)
  Receive Date: 20240408
  Receipt Date: 20240627
  Transmission Date: 20240716
  Serious: Yes (Other)
  Sender: FDA-Public Use
  Company Number: US-PFIZER INC-PV202400044322

PATIENT
  Age: 5 Year
  Sex: Male

DRUGS (6)
  1. HYDROCORTISONE [Suspect]
     Active Substance: HYDROCORTISONE\HYDROCORTISONE ACETATE
     Indication: Hypopituitarism
     Dosage: 5 MG
     Dates: start: 202104
  2. HYDROCORTISONE [Suspect]
     Active Substance: HYDROCORTISONE\HYDROCORTISONE ACETATE
     Indication: Adrenal insufficiency
  3. HYDROCORTISONE [Suspect]
     Active Substance: HYDROCORTISONE\HYDROCORTISONE ACETATE
     Indication: Central hypothyroidism
  4. HYDROCORTISONE [Suspect]
     Active Substance: HYDROCORTISONE\HYDROCORTISONE ACETATE
     Indication: Growth hormone deficiency
  5. LEVOTHYROXINE [Concomitant]
     Active Substance: LEVOTHYROXINE\LEVOTHYROXINE SODIUM
  6. SOMATROPIN [Concomitant]
     Active Substance: SOMATROPIN

REACTIONS (7)
  - Product substitution issue [Unknown]
  - Self-destructive behaviour [Recovered/Resolved]
  - Drug ineffective [Unknown]
  - Developmental regression [Recovered/Resolved]
  - Aggression [Recovered/Resolved]
  - Behaviour disorder [Recovered/Resolved]
  - Head banging [Recovered/Resolved]
